FAERS Safety Report 6042061-2 (Version None)
Quarter: 2009Q1

REPORT INFORMATION
  Report Type: 
  Country: None (occurrence: None)
  Receive Date: 20090116
  Receipt Date: 20080424
  Transmission Date: 20090719
  Serious: No
  Sender: FDA-Public Use
  Company Number: US-BAYER-200811881BCC

PATIENT
  Age: 40 Year
  Sex: Female
  Weight: 81 kg

DRUGS (2)
  1. ALEVE [Suspect]
     Indication: DYSMENORRHOEA
     Route: 048
  2. ABILIFY [Concomitant]

REACTIONS (2)
  - BLOOD PRESSURE ABNORMAL [None]
  - HYPOAESTHESIA FACIAL [None]
